FAERS Safety Report 8281590-8 (Version None)
Quarter: 2012Q2

REPORT INFORMATION
  Report Type: 
  Country: None (occurrence: None)
  Receive Date: 20120413
  Receipt Date: 20120409
  Transmission Date: 20120825
  Serious: Yes (Hospitalization)
  Sender: FDA-Public Use
  Company Number: BR-US-EMD SERONO, INC.-7125231

PATIENT
  Sex: Female

DRUGS (2)
  1. REBIF [Suspect]
     Indication: RELAPSING-REMITTING MULTIPLE SCLEROSIS
     Dates: start: 19960701
  2. TYLENOL (CAPLET) [Concomitant]
     Indication: PRODUCT USED FOR UNKNOWN INDICATION

REACTIONS (4)
  - GAIT DISTURBANCE [None]
  - FATIGUE [None]
  - BALANCE DISORDER [None]
  - PAIN IN EXTREMITY [None]
